FAERS Safety Report 5628057-0 (Version None)
Quarter: 2008Q1

REPORT INFORMATION
  Report Type: 
  Country: None (occurrence: None)
  Receive Date: 20080215
  Receipt Date: 20080213
  Transmission Date: 20080703
  Serious: Yes (Death)
  Sender: FDA-Public Use
  Company Number: US-ASTRAZENECA-2007UW27914

PATIENT
  Age: 52 Year
  Sex: Male
  Weight: 71.8 kg

DRUGS (3)
  1. SEROQUEL [Suspect]
     Indication: BIPOLAR DISORDER
     Dosage: 300 MG-800 MG
     Route: 048
     Dates: start: 20070302, end: 20070807
  2. SERTRALINE [Suspect]
     Indication: BIPOLAR I DISORDER
     Dosage: 50-100
     Route: 048
     Dates: start: 20041229, end: 20070411
  3. LAMICTAL [Concomitant]
     Indication: BIPOLAR DISORDER
     Dosage: 25-200 MG
     Route: 048
     Dates: start: 20041229, end: 20070807

REACTIONS (2)
  - COMPLETED SUICIDE [None]
  - INTENTIONAL OVERDOSE [None]
